FAERS Safety Report 19271959 (Version 3)
Quarter: 2021Q2

REPORT INFORMATION
  Report Type: Spontaneous
  Country: US (occurrence: US)
  Receive Date: 20210519
  Receipt Date: 20210610
  Transmission Date: 20210717
  Serious: No
  Sender: FDA-Public Use
  Company Number: US-SA-2021SA163203

PATIENT
  Age: 9 Year
  Sex: Female

DRUGS (1)
  1. DUPIXENT [Suspect]
     Active Substance: DUPILUMAB
     Indication: ASTHMA
     Dosage: 300 MG, QOW
     Route: 058
     Dates: start: 20210406

REACTIONS (5)
  - Sleep disorder [Not Recovered/Not Resolved]
  - Asthma [Not Recovered/Not Resolved]
  - Product use issue [Unknown]
  - Eczema [Not Recovered/Not Resolved]
  - Impaired quality of life [Not Recovered/Not Resolved]

NARRATIVE: CASE EVENT DATE: 2021
